FAERS Safety Report 14272719 (Version 1)
Quarter: 2017Q4

REPORT INFORMATION
  Report Type: Spontaneous
  Country: US (occurrence: US)
  Receive Date: 20171211
  Receipt Date: 20171211
  Transmission Date: 20180321
  Serious: No
  Sender: FDA-Public Use
  Company Number: None

PATIENT
  Sex: Male
  Weight: 129.6 kg

DRUGS (4)
  1. LOTRIMIN ULTRA [Suspect]
     Active Substance: BUTENAFINE HYDROCHLORIDE
     Indication: TINEA PEDIS
     Route: 061
     Dates: start: 20171206, end: 20171208
  2. TRUVADA [Concomitant]
     Active Substance: EMTRICITABINE\TENOFOVIR DISOPROXIL FUMARATE
  3. NAPROXEN. [Concomitant]
     Active Substance: NAPROXEN
  4. C-PAP MACHINE [Concomitant]
     Active Substance: DEVICE

REACTIONS (2)
  - Application site pruritus [None]
  - Application site vesicles [None]

NARRATIVE: CASE EVENT DATE: 20171208
